FAERS Safety Report 10055819 (Version 1)
Quarter: 2014Q2

REPORT INFORMATION
  Report Type: Other
  Country: GB (occurrence: GB)
  Receive Date: 20140403
  Receipt Date: 20140403
  Transmission Date: 20141212
  Serious: Yes (Disabling)
  Sender: FDA-Public Use
  Company Number: GB-SUN PHARMACEUTICAL INDUSTRIES LTD-2014SUN00700

PATIENT
  Age: 57 Year
  Sex: Male
  Weight: 82.55 kg

DRUGS (2)
  1. VENLAFAXINE HYDROCHLORIDE 37.5MG TABLET [Suspect]
     Indication: PRODUCT USED FOR UNKNOWN INDICATION
     Route: 065
  2. DEPAKOTE [Suspect]
     Indication: BIPOLAR DISORDER
     Route: 048
     Dates: start: 201211

REACTIONS (2)
  - Penile size reduced [Not Recovered/Not Resolved]
  - Erectile dysfunction [Not Recovered/Not Resolved]
